FAERS Safety Report 10669346 (Version 5)
Quarter: 2016Q2

REPORT INFORMATION
  Report Type: Spontaneous
  Country: RS (occurrence: RS)
  Receive Date: 20141222
  Receipt Date: 20160628
  Transmission Date: 20160815
  Serious: Yes (Death, Other)
  Sender: FDA-Public Use
  Company Number: PHHY2014RS162463

PATIENT
  Age: 49 Year
  Sex: Male

DRUGS (4)
  1. CICLOSPORIN [Suspect]
     Active Substance: CYCLOSPORINE
     Indication: IMMUNOSUPPRESSANT DRUG THERAPY
  2. MYCOPHENOLATE MOFETIL. [Suspect]
     Active Substance: MYCOPHENOLATE MOFETIL
     Indication: IMMUNOSUPPRESSANT DRUG THERAPY
  3. CICLOSPORIN [Suspect]
     Active Substance: CYCLOSPORINE
     Indication: TRANSFUSION ASSOCIATED GRAFT VERSUS HOST DISEASE
     Route: 065
  4. MYCOPHENOLATE MOFETIL. [Suspect]
     Active Substance: MYCOPHENOLATE MOFETIL
     Indication: TRANSFUSION ASSOCIATED GRAFT VERSUS HOST DISEASE
     Route: 065

REACTIONS (8)
  - Cytomegalovirus infection [Unknown]
  - Pseudomonas infection [Unknown]
  - Cardiac failure [Fatal]
  - Pancytopenia [Fatal]
  - Hepatic failure [Fatal]
  - General physical health deterioration [Unknown]
  - Product use issue [Unknown]
  - Staphylococcal infection [Unknown]
